FAERS Safety Report 11678260 (Version 1)
Quarter: 2015Q4

REPORT INFORMATION
  Report Type: Spontaneous
  Country: AU (occurrence: AU)
  Receive Date: 20151028
  Receipt Date: 20151028
  Transmission Date: 20160304
  Serious: Yes (Hospitalization, Other)
  Sender: FDA-Public Use
  Company Number: PHHY2015AU136455

PATIENT

DRUGS (3)
  1. PREDNISOLONE. [Suspect]
     Active Substance: PREDNISOLONE
     Indication: PRODUCT USED FOR UNKNOWN INDICATION
     Dosage: 15 MG, UNK
     Route: 065
     Dates: end: 201509
  2. TRAMETINIB [Suspect]
     Active Substance: TRAMETINIB
     Indication: MALIGNANT MELANOMA
     Dosage: UNK
     Route: 065
     Dates: end: 201509
  3. DABRAFENIB [Suspect]
     Active Substance: DABRAFENIB
     Indication: MALIGNANT MELANOMA
     Route: 065

REACTIONS (12)
  - Pulmonary mass [Recovered/Resolved]
  - Pyrexia [Unknown]
  - Atelectasis [Recovered/Resolved]
  - Pyrexia [Recovered/Resolved]
  - Metastases to central nervous system [Unknown]
  - Pulmonary mass [Unknown]
  - Lymphadenopathy [Unknown]
  - Breast mass [Unknown]
  - Malaise [Unknown]
  - Chills [Unknown]
  - Malignant neoplasm progression [Unknown]
  - Blood lactate dehydrogenase increased [Unknown]

NARRATIVE: CASE EVENT DATE: 201410
